FAERS Safety Report 8996043 (Version 1)
Quarter: 2013Q1

REPORT INFORMATION
  Report Type: Spontaneous
  Country: US (occurrence: US)
  Receive Date: 20130103
  Receipt Date: 20130103
  Transmission Date: 20140127
  Serious: No
  Sender: FDA-Public Use
  Company Number: US-ABBOTT-12P-163-0893392-00

PATIENT
  Age: 62 Year
  Sex: Female
  Weight: 49.49 kg

DRUGS (5)
  1. SYNTHROID [Suspect]
     Indication: HYPOTHYROIDISM
  2. SYNTHROID 88 MCG [Suspect]
     Indication: HYPOTHYROIDISM
  3. SYNTHROID [Suspect]
     Indication: HYPOTHYROIDISM
  4. DETROL LA [Concomitant]
     Indication: URINARY INCONTINENCE
  5. VITAMINS [Concomitant]
     Indication: VITAMIN SUPPLEMENTATION

REACTIONS (3)
  - Alopecia [Unknown]
  - Blood thyroid stimulating hormone increased [Unknown]
  - Blood iron decreased [Unknown]
